FAERS Safety Report 4686402-7 (Version None)
Quarter: 2005Q2

REPORT INFORMATION
  Report Type: 
  Country: None (occurrence: None)
  Receive Date: 20050609
  Receipt Date: 20050531
  Transmission Date: 20051028
  Serious: Yes (Hospitalization)
  Sender: FDA-Public Use
  Company Number: US-ROCHE-406480

PATIENT
  Age: 46 Year
  Sex: Male
  Weight: 67.1 kg

DRUGS (4)
  1. PEGASYS [Suspect]
     Indication: HEPATITIS C
     Route: 058
     Dates: start: 20050415, end: 20050502
  2. COPEGUS [Suspect]
     Indication: HEPATITIS C
     Dosage: PILLS.
     Route: 048
     Dates: start: 20050415, end: 20050502
  3. XANAX [Concomitant]
     Indication: ANXIETY
     Route: 048
  4. OXYCONTIN [Concomitant]
     Indication: PAIN
     Route: 048

REACTIONS (5)
  - ARTERIAL OCCLUSIVE DISEASE [None]
  - BLADDER PAIN [None]
  - CHEST PAIN [None]
  - DEHYDRATION [None]
  - HEADACHE [None]
